FAERS Safety Report 13384916 (Version 2)
Quarter: 2017Q2

REPORT INFORMATION
  Report Type: Spontaneous
  Country: US (occurrence: US)
  Receive Date: 20170329
  Receipt Date: 20170413
  Transmission Date: 20170830
  Serious: No
  Sender: FDA-Public Use
  Company Number: US-PFIZER INC-2017134721

PATIENT
  Age: 36 Year
  Sex: Female
  Weight: 52.61 kg

DRUGS (10)
  1. SOLU-CORTEF [Concomitant]
     Active Substance: HYDROCORTISONE SODIUM SUCCINATE
     Dosage: 100 MG, UNK (MULTIPLE TIMES DURING THIS TIME)
  2. HYDROCORTISONE. [Suspect]
     Active Substance: HYDROCORTISONE
     Dosage: UNK, EVERY TWO HOURS
  3. HYDROCORTISONE. [Suspect]
     Active Substance: HYDROCORTISONE
     Dosage: 25 MG, DAILY (25MG IN THE MORNING FOR A TOTAL OF 10MG, AND THEN 5MG TABLETS THREE MORE TIMES)
  4. HYDROCORTISONE. [Suspect]
     Active Substance: HYDROCORTISONE
     Indication: ADRENAL INSUFFICIENCY
     Dosage: UNK, 4X/DAY (25-30MG, TABLETS)
     Route: 048
     Dates: start: 201511, end: 20170313
  5. HYDROCORTISONE. [Suspect]
     Active Substance: HYDROCORTISONE
     Dosage: 40 MG, UNK
  6. HYDROCORTISONE. [Suspect]
     Active Substance: HYDROCORTISONE
     Dosage: UNK (6 TIMES A DAY OR EVERY FOUR HOURS)
     Dates: end: 201703
  7. HYDROCORTISONE. [Suspect]
     Active Substance: HYDROCORTISONE
     Dosage: 25 MG, DAILY
  8. HYDROCORTISONE. [Suspect]
     Active Substance: HYDROCORTISONE
     Dosage: 80 MG, UNK
  9. HYDROCORTISONE. [Suspect]
     Active Substance: HYDROCORTISONE
     Dosage: 200 MG, UNK
  10. HYDROCORTISONE. [Suspect]
     Active Substance: HYDROCORTISONE
     Dosage: UNK (5 TIMES A DAY)

REACTIONS (19)
  - Flushing [Recovered/Resolved]
  - Malaise [Recovering/Resolving]
  - Stress [Unknown]
  - Erythema [Recovered/Resolved]
  - Paraesthesia [Recovered/Resolved with Sequelae]
  - Drug ineffective [Not Recovered/Not Resolved]
  - Nausea [Recovering/Resolving]
  - Fear [Recovering/Resolving]
  - Rash [Recovered/Resolved]
  - Abdominal discomfort [Recovering/Resolving]
  - Abdominal pain upper [Unknown]
  - Weight decreased [Recovered/Resolved with Sequelae]
  - Fear of death [Unknown]
  - Skin burning sensation [Recovering/Resolving]
  - Product colour issue [Unknown]
  - Poor quality drug administered [Unknown]
  - Anxiety [Recovering/Resolving]
  - Intentional product misuse [Unknown]
  - Product odour abnormal [Unknown]

NARRATIVE: CASE EVENT DATE: 201701
